FAERS Safety Report 9675460 (Version 2)
Quarter: 2013Q4

REPORT INFORMATION
  Report Type: Spontaneous
  Country: FR (occurrence: FR)
  Receive Date: 20131107
  Receipt Date: 20131118
  Transmission Date: 20140711
  Serious: Yes (Hospitalization)
  Sender: FDA-Public Use
  Company Number: FR-OTSUKA-US-2013-12057

PATIENT
  Sex: Female

DRUGS (21)
  1. BUSULFEX [Suspect]
     Indication: ACUTE MYELOID LEUKAEMIA
     Dosage: UNK
     Route: 042
     Dates: start: 201303, end: 201303
  2. GLIVEC [Suspect]
     Indication: CHRONIC MYELOID LEUKAEMIA
     Dosage: 400 MG MILLIGRAM(S), UNK
     Route: 048
     Dates: start: 2007, end: 2009
  3. GLIVEC [Suspect]
     Dosage: 600 MG MILLIGRAM(S), UNK
     Route: 048
     Dates: start: 2009
  4. ROVAMYCINE [Concomitant]
     Indication: PRODUCT USED FOR UNKNOWN INDICATION
     Dosage: 3000000 IU/G, BID
     Dates: start: 201304
  5. ZELITREX [Concomitant]
     Indication: PRODUCT USED FOR UNKNOWN INDICATION
     Dosage: 500 MG MILLIGRAM(S), BID
     Dates: start: 201304
  6. WELLVONE [Concomitant]
     Indication: PRODUCT USED FOR UNKNOWN INDICATION
     Dosage: 750 MG/ML, BID
     Route: 048
  7. WELLVONE [Concomitant]
     Dosage: 750 MG MILLIGRAM(S), BID
     Route: 048
  8. MOPRAL [Concomitant]
     Indication: PRODUCT USED FOR UNKNOWN INDICATION
     Dosage: 20 MG MILLIGRAM(S), UNK
     Dates: start: 201303
  9. LYRICA [Concomitant]
     Indication: PRODUCT USED FOR UNKNOWN INDICATION
     Dosage: 25 MG MILLIGRAM(S), BID
  10. SEROPLEX [Concomitant]
     Indication: PRODUCT USED FOR UNKNOWN INDICATION
     Dosage: 1 DF DOSAGE FORM, UNK
     Route: 048
  11. TASIGNA [Suspect]
     Indication: CHRONIC MYELOID LEUKAEMIA
     Dosage: 800 MG MILLIGRAM(S), UNK
     Route: 048
     Dates: start: 201006, end: 201109
  12. TASIGNA [Suspect]
     Dosage: 400 MG MILLIGRAM(S), QD
     Route: 048
     Dates: start: 201006, end: 201109
  13. SPRYCEL [Suspect]
     Indication: CHRONIC MYELOID LEUKAEMIA
     Dosage: 50 MG MILLIGRAM(S), QD
     Route: 048
     Dates: start: 201207, end: 201208
  14. CERUBIDINE [Suspect]
     Indication: ACUTE MYELOID LEUKAEMIA
     Dosage: UNK
     Route: 042
     Dates: start: 201210, end: 201210
  15. ARACYTINE [Suspect]
     Indication: ACUTE MYELOID LEUKAEMIA
     Dosage: UNK
     Route: 042
     Dates: start: 201210, end: 201212
  16. ZAVEDOS [Suspect]
     Indication: ACUTE MYELOID LEUKAEMIA
     Dosage: UNK
     Route: 042
     Dates: start: 201212, end: 201212
  17. ENDOXAN [Suspect]
     Indication: ACUTE MYELOID LEUKAEMIA
     Dosage: UNK
     Route: 042
     Dates: start: 201303, end: 201303
  18. NEORAL [Suspect]
     Indication: PRODUCT USED FOR UNKNOWN INDICATION
     Dosage: 75 MG MILLIGRAM(S), BID
     Route: 048
     Dates: start: 201303, end: 20130812
  19. NEORAL [Suspect]
     Dosage: 50 MG MILLIGRAM(S), BID
     Route: 048
     Dates: start: 20130812, end: 20130829
  20. NOXAFIL [Suspect]
     Indication: PRODUCT USED FOR UNKNOWN INDICATION
     Dosage: 200 MG MILLIGRAM(S), TID
     Route: 048
     Dates: start: 201301, end: 201309
  21. LEXOMIL [Concomitant]
     Indication: PRODUCT USED FOR UNKNOWN INDICATION
     Dosage: 0.5 DF DOSAGE FORM, UNK
     Route: 048

REACTIONS (4)
  - Myocardial infarction [Recovering/Resolving]
  - Acute coronary syndrome [Recovering/Resolving]
  - Cardiac failure [Recovering/Resolving]
  - Ejection fraction decreased [Recovering/Resolving]
